FAERS Safety Report 5139346-0 (Version None)
Quarter: 2006Q4

REPORT INFORMATION
  Report Type: 
  Country: None (occurrence: None)
  Receive Date: 20061024
  Receipt Date: 20061013
  Transmission Date: 20070319
  Serious: Yes (Hospitalization)
  Sender: FDA-Public Use
  Company Number: 2006-02662

PATIENT
  Age: 52 Year
  Sex: Male

DRUGS (6)
  1. VELCADE [Suspect]
     Indication: MANTLE CELL LYMPHOMA
     Dosage: 1.30 MG/M2,
     Dates: start: 20060731, end: 20060803
  2. RITUXIMAB (RITUXIMAB) SOLUTION (EXCEPT SYRUP) [Suspect]
     Indication: MANTLE CELL LYMPHOMA
     Dates: start: 20060731
  3. CYCLOPHOSPHAMIDE [Suspect]
     Indication: MANTLE CELL LYMPHOMA
     Dates: start: 20060731
  4. DOXORUBICIN HCL [Suspect]
     Indication: MANTLE CELL LYMPHOMA
     Dates: start: 20060731
  5. VINCRISTINE [Suspect]
     Indication: MANTLE CELL LYMPHOMA
     Dates: start: 20060731
  6. PREDNISOLONE [Suspect]
     Dates: start: 20060731

REACTIONS (2)
  - DISEASE PROGRESSION [None]
  - PANCYTOPENIA [None]
